FAERS Safety Report 9922824 (Version 2)
Quarter: 2014Q1

REPORT INFORMATION
  Report Type: Spontaneous
  Country: TN (occurrence: GB)
  Receive Date: 20140225
  Receipt Date: 20140225
  Transmission Date: 20141002
  Serious: Yes (Hospitalization)
  Sender: FDA-Public Use
  Company Number: GB-PFIZER INC-2014047397

PATIENT
  Age: 37 Year
  Sex: Female

DRUGS (4)
  1. SULFASALAZINE [Suspect]
     Indication: ARTHRITIS
     Dosage: 0.5 G, DAILY
     Route: 048
     Dates: start: 1989, end: 1989
  2. SULFASALAZINE [Suspect]
     Dosage: 1 G, DAILY
     Route: 048
     Dates: start: 1989, end: 1989
  3. THYROXINE [Concomitant]
     Indication: HYPOTHYROIDISM
  4. METHYLPREDNISOLONE [Concomitant]
     Indication: POLYARTHRITIS
     Dosage: 1 G PULSE

REACTIONS (4)
  - Meningitis aseptic [Recovered/Resolved]
  - Pain in extremity [Recovering/Resolving]
  - Hypersensitivity [Recovered/Resolved]
  - Rash macular [Recovered/Resolved]
